FAERS Safety Report 10245624 (Version 1)
Quarter: 2014Q2

REPORT INFORMATION
  Report Type: Spontaneous
  Country: VE (occurrence: VE)
  Receive Date: 20140619
  Receipt Date: 20140619
  Transmission Date: 20141212
  Serious: Yes (Other)
  Sender: FDA-Public Use
  Company Number: VE-ROCHE-1420863

PATIENT
  Age: 87 Year
  Sex: Female

DRUGS (1)
  1. RITUXIMAB [Suspect]
     Indication: NON-HODGKIN^S LYMPHOMA
     Route: 042
     Dates: end: 20140527

REACTIONS (2)
  - Cerebrovascular disorder [Not Recovered/Not Resolved]
  - Herpes zoster [Not Recovered/Not Resolved]
